FAERS Safety Report 16848745 (Version 1)
Quarter: 2019Q3

REPORT INFORMATION
  Report Type: Spontaneous
  Country: US (occurrence: US)
  Receive Date: 20190925
  Receipt Date: 20190925
  Transmission Date: 20191005
  Serious: No
  Sender: FDA-Public Use
  Company Number: US-ASTRAZENECA-2019SF24382

PATIENT
  Age: 61 Year
  Sex: Female

DRUGS (1)
  1. FASENRA [Suspect]
     Active Substance: BENRALIZUMAB
     Indication: ASTHMA
     Dosage: FIRST THREE DOSES WERE GIVEN EVERY 4 WEEKS
     Route: 058

REACTIONS (2)
  - Asthma [Unknown]
  - Product dose omission [Unknown]
